FAERS Safety Report 9278220 (Version 1)
Quarter: 2013Q2

REPORT INFORMATION
  Report Type: Spontaneous
  Country: FR (occurrence: FR)
  Receive Date: 20130508
  Receipt Date: 20130508
  Transmission Date: 20140414
  Serious: Yes (Hospitalization)
  Sender: FDA-Public Use
  Company Number: PHHY2013FR044716

PATIENT
  Sex: Female

DRUGS (6)
  1. RITALINE [Suspect]
     Dosage: 60 MG, DAILY
     Route: 042
  2. SKENAN [Suspect]
     Dosage: 200 MG, (EVERY TWO DAYS)
     Route: 042
  3. METHADONE [Concomitant]
     Indication: WITHDRAWAL SYNDROME
     Dosage: 80 MG, DAILY
     Route: 048
  4. KEPPRA [Concomitant]
     Indication: EPILEPSY
     Dosage: UNK
  5. DEPAKINE [Concomitant]
     Indication: EPILEPSY
     Dosage: UNK
  6. RIVOTRIL [Concomitant]
     Indication: EPILEPSY
     Dosage: UNK

REACTIONS (1)
  - Intentional drug misuse [Recovering/Resolving]
